FAERS Safety Report 25562205 (Version 2)
Quarter: 2025Q4

REPORT INFORMATION
  Report Type: Spontaneous
  Country: US (occurrence: US)
  Receive Date: 20250716
  Receipt Date: 20251115
  Transmission Date: 20260117
  Serious: No
  Sender: SANOFI AVENTIS
  Company Number: US-SA-2025SA199775

PATIENT
  Age: 6 Month
  Sex: Female

DRUGS (3)
  1. DUPIXENT [Suspect]
     Active Substance: DUPILUMAB
     Indication: Eczema
     Dosage: 200 MG, Q4W
     Route: 058
     Dates: start: 20250523
  2. DUPIXENT [Suspect]
     Active Substance: DUPILUMAB
     Indication: Dermatitis atopic
  3. AMOXICILLIN [Suspect]
     Active Substance: AMOXICILLIN
     Dosage: UNK
     Dates: start: 202510, end: 2025

REACTIONS (8)
  - Productive cough [Unknown]
  - Sneezing [Unknown]
  - Pyrexia [Unknown]
  - Eczema [Not Recovered/Not Resolved]
  - Ear infection [Unknown]
  - Nasopharyngitis [Unknown]
  - Dermatitis atopic [Not Recovered/Not Resolved]
  - Rash pruritic [Not Recovered/Not Resolved]

NARRATIVE: CASE EVENT DATE: 20250101
